FAERS Safety Report 11193149 (Version 3)
Quarter: 2015Q3

REPORT INFORMATION
  Report Type: Spontaneous
  Country: US (occurrence: US)
  Receive Date: 20150616
  Receipt Date: 20150902
  Transmission Date: 20151125
  Serious: Yes (Hospitalization)
  Sender: FDA-Public Use
  Company Number: US-BAYER-2015-335060

PATIENT
  Age: 57 Year
  Sex: Male
  Weight: 95 kg

DRUGS (1)
  1. GADAVIST [Suspect]
     Active Substance: GADOBUTROL
     Indication: BONE SCAN
     Dosage: 9.5 ML, ONCE
     Route: 042
     Dates: start: 20150612, end: 20150612

REACTIONS (13)
  - Seizure [Unknown]
  - Foaming at mouth [Unknown]
  - Burning sensation [Unknown]
  - Dyspnoea [Unknown]
  - Disorientation [Unknown]
  - Fatigue [Unknown]
  - Eye movement disorder [Unknown]
  - Musculoskeletal stiffness [Unknown]
  - Nausea [Unknown]
  - Retching [Unknown]
  - Hypotonia [Unknown]
  - Paraesthesia [Unknown]
  - Postictal state [Unknown]

NARRATIVE: CASE EVENT DATE: 20150612
